FAERS Safety Report 8237293-9 (Version None)
Quarter: 2012Q1

REPORT INFORMATION
  Report Type: 
  Country: None (occurrence: None)
  Receive Date: 20120327
  Receipt Date: 20120320
  Transmission Date: 20120608
  Serious: Yes (Disabling)
  Sender: FDA-Public Use
  Company Number: ZA-SANOFI-AVENTIS-2011SA019469

PATIENT
  Sex: Female

DRUGS (6)
  1. TAXOTERE [Suspect]
     Route: 065
     Dates: start: 20081027, end: 20081027
  2. NEUPOGEN [Concomitant]
     Route: 065
  3. TAXOTERE [Suspect]
     Indication: BREAST CANCER
     Route: 065
     Dates: start: 20080827, end: 20080827
  4. TAXOTERE [Suspect]
     Route: 065
     Dates: start: 20080916, end: 20080916
  5. TAXOTERE [Suspect]
     Route: 065
     Dates: start: 20081007, end: 20081007
  6. CORTICOSTEROIDS [Concomitant]
     Indication: PREMEDICATION
     Route: 065

REACTIONS (2)
  - ALOPECIA [None]
  - STRESS [None]
